APPROVED DRUG PRODUCT: SUCCINYLCHOLINE CHLORIDE
Active Ingredient: SUCCINYLCHOLINE CHLORIDE
Strength: 20MG/ML
Dosage Form/Route: INJECTABLE;INJECTION
Application: A214308 | Product #001 | TE Code: AP
Applicant: REGCON HOLDINGS LLC
Approved: May 22, 2020 | RLD: No | RS: No | Type: RX